FAERS Safety Report 10017842 (Version 2)
Quarter: 2014Q1

REPORT INFORMATION
  Report Type: Spontaneous
  Country: US (occurrence: US)
  Receive Date: 20140318
  Receipt Date: 20140318
  Transmission Date: 20141002
  Serious: Yes (Hospitalization, Other)
  Sender: FDA-Public Use
  Company Number: US-ASTELLAS-2013US004287

PATIENT
  Age: 39 Year
  Sex: Female

DRUGS (3)
  1. PROGRAF [Suspect]
     Indication: RENAL TRANSPLANT
     Dosage: 1 MG, BID
     Route: 048
     Dates: start: 19970812
  2. PROGRAF [Suspect]
     Indication: TUBERCULOUS PLEURISY
  3. PROGRAF [Suspect]
     Indication: PANCREAS TRANSPLANT

REACTIONS (5)
  - Off label use [Unknown]
  - Life support [Unknown]
  - Adverse event [Unknown]
  - Visual acuity reduced [Unknown]
  - Pneumonia [Unknown]
